FAERS Safety Report 10178124 (Version 7)
Quarter: 2015Q3

REPORT INFORMATION
  Report Type: Spontaneous
  Country: ES (occurrence: ES)
  Receive Date: 20140519
  Receipt Date: 20150724
  Transmission Date: 20151125
  Serious: Yes (Other)
  Sender: FDA-Public Use
  Company Number: ES-AMGEN INC.-ESPSP2014036100

PATIENT
  Age: 66 Year
  Sex: Female

DRUGS (9)
  1. ENBREL [Suspect]
     Active Substance: ETANERCEPT
     Dosage: UNK
     Route: 065
     Dates: end: 2013
  2. PREDNISONE. [Concomitant]
     Active Substance: PREDNISONE
     Indication: RHEUMATOID ARTHRITIS
     Dosage: 2.5 MG, 1 TABLET EVERY 24 HOURS
  3. ENBREL [Suspect]
     Active Substance: ETANERCEPT
     Indication: RHEUMATOID ARTHRITIS
     Dosage: 25 MG, WEEKLY
     Route: 058
     Dates: start: 20040101, end: 2007
  4. ENBREL [Suspect]
     Active Substance: ETANERCEPT
     Dosage: UNK
     Route: 065
     Dates: start: 2014, end: 2015
  5. PREDNISONE. [Concomitant]
     Active Substance: PREDNISONE
     Dosage: 5 MG, 1 TABLET EVERY 24 HOURS
  6. MOTIVAN                            /00830802/ [Concomitant]
     Indication: ANXIETY
     Dosage: 20 MG, 1X/DAY
  7. METHOTREXATE [Concomitant]
     Active Substance: METHOTREXATE
     Indication: RHEUMATOID ARTHRITIS
     Dosage: 7.5 MG, WEEKLY (EVERY SUNDAY TWO TABLETS OF 2.5 MG IN THE MORNING AND ONE TABLET OF 2.5 MG AT NIGHT)
  8. FOLAXIN                            /00024201/ [Concomitant]
     Indication: PROPHYLAXIS
     Dosage: 1 DF, WEEKLY (EVERY MONDAY)
  9. NAPROXIN                           /00256201/ [Concomitant]
     Active Substance: NAPROXEN
     Indication: PROPHYLAXIS
     Dosage: 500 MG, 2X/DAY

REACTIONS (8)
  - Spinal compression fracture [Recovered/Resolved]
  - Blood cholesterol increased [Unknown]
  - Sciatica [Not Recovered/Not Resolved]
  - Drug ineffective [Recovered/Resolved]
  - Rheumatoid arthritis [Recovered/Resolved]
  - Hypoaesthesia [Recovered/Resolved]
  - Pain [Recovered/Resolved]
  - Condition aggravated [Recovered/Resolved]

NARRATIVE: CASE EVENT DATE: 2007
